FAERS Safety Report 4874425-4 (Version None)
Quarter: 2006Q1

REPORT INFORMATION
  Report Type: 
  Country: None (occurrence: None)
  Receive Date: 20060104
  Receipt Date: 20051222
  Transmission Date: 20060701
  Serious: Yes (Hospitalization)
  Sender: FDA-Public Use
  Company Number: 2005PV006248

PATIENT
  Age: 76 Year
  Sex: Female

DRUGS (5)
  1. BYETTA [Suspect]
     Indication: DIABETES MELLITUS NON-INSULIN-DEPENDENT
     Dosage: 10 MCG; QAM; SC; 10 MCG; BID; SC; 5 MCG; BID; SC
     Route: 058
     Dates: start: 20050601, end: 20050701
  2. BYETTA [Suspect]
     Indication: DIABETES MELLITUS NON-INSULIN-DEPENDENT
     Dosage: 10 MCG; QAM; SC; 10 MCG; BID; SC; 5 MCG; BID; SC
     Route: 058
     Dates: start: 20050701, end: 20051117
  3. BYETTA [Suspect]
     Indication: DIABETES MELLITUS NON-INSULIN-DEPENDENT
     Dosage: 10 MCG; QAM; SC; 10 MCG; BID; SC; 5 MCG; BID; SC
     Route: 058
     Dates: start: 20051125
  4. AMARYL [Concomitant]
  5. ACTOS LILLY [Concomitant]

REACTIONS (3)
  - HYPOGLYCAEMIA [None]
  - INADEQUATE DIET [None]
  - LOSS OF CONSCIOUSNESS [None]
